FAERS Safety Report 5257451-5 (Version None)
Quarter: 2007Q1

REPORT INFORMATION
  Report Type: 
  Country: None (occurrence: None)
  Receive Date: 20070307
  Receipt Date: 20061121
  Transmission Date: 20070707
  Serious: No
  Sender: FDA-Public Use
  Company Number: US-GLAXOSMITHKLINE-A0615620A

PATIENT
  Age: 58 Year
  Sex: Female

DRUGS (10)
  1. REQUIP [Suspect]
     Indication: PARKINSON'S DISEASE
     Dosage: 4MG FOUR TIMES PER DAY
     Route: 048
  2. PROPRANOLOL [Concomitant]
  3. BUPROPION HCL [Concomitant]
  4. LORAZEPAM [Concomitant]
  5. FUROSEMIDE [Concomitant]
  6. ZAROXOLYN [Concomitant]
  7. KLOR-CON [Concomitant]
  8. IBUPROFEN [Concomitant]
  9. LEXAPRO [Concomitant]
  10. ZOCOR [Concomitant]

REACTIONS (2)
  - ORAL DISCOMFORT [None]
  - PHARMACEUTICAL PRODUCT COMPLAINT [None]
